FAERS Safety Report 21973933 (Version 4)
Quarter: 2023Q1

REPORT INFORMATION
  Report Type: Report from Study
  Country: CA (occurrence: None)
  Receive Date: 20230209
  Receipt Date: 20230313
  Transmission Date: 20230417
  Serious: Yes (Death, Other)
  Sender: FDA-Public Use
  Company Number: 2023A032124

PATIENT
  Sex: Male
  Weight: 94.4 kg

DRUGS (3)
  1. IMFINZI [Suspect]
     Active Substance: DURVALUMAB
     Indication: Biliary neoplasm
     Route: 042
     Dates: start: 20230116
  2. PANTOPRAZOLE [Concomitant]
     Active Substance: PANTOPRAZOLE
     Indication: Gastrooesophageal reflux disease
     Route: 048
     Dates: end: 20230130
  3. BISOPROLOL [Concomitant]
     Active Substance: BISOPROLOL

REACTIONS (8)
  - Respiratory failure [Fatal]
  - Pulmonary thrombosis [Unknown]
  - Cerebrovascular accident [Unknown]
  - Thrombosis [Unknown]
  - Abdominal infection [Unknown]
  - Obstruction [Unknown]
  - Pharyngeal swelling [Unknown]
  - Dysphagia [Unknown]
